FAERS Safety Report 5269482-X (Version None)
Quarter: 2007Q1

REPORT INFORMATION
  Report Type: 
  Country: None (occurrence: None)
  Receive Date: 20070320
  Receipt Date: 20070308
  Transmission Date: 20070707
  Serious: Yes (Death)
  Sender: FDA-Public Use
  Company Number: GB-BAYER-200710295BNE

PATIENT
  Age: 70 Year
  Sex: Male

DRUGS (8)
  1. ASPIRIN [Suspect]
     Indication: THROMBOLYSIS
     Route: 048
     Dates: start: 20061003, end: 20061003
  2. CLOPIDOGREL [Suspect]
     Indication: THROMBOLYSIS
     Route: 048
     Dates: start: 20061003, end: 20061003
  3. ENOXAPARIN SODIUM [Suspect]
     Indication: THROMBOLYSIS
     Route: 040
     Dates: start: 20061003, end: 20061003
  4. ENOXAPARIN SODIUM [Suspect]
     Route: 058
     Dates: start: 20061003, end: 20061003
  5. TENECTEPLASE [Suspect]
     Indication: THROMBOLYSIS
     Route: 040
     Dates: start: 20061003, end: 20061003
  6. ATENOLOL [Concomitant]
  7. GTN-S [Concomitant]
     Route: 041
     Dates: start: 20061003, end: 20061003
  8. MORPHINE [Concomitant]
     Route: 040
     Dates: start: 20061003

REACTIONS (1)
  - CEREBRAL HAEMORRHAGE [None]
